FAERS Safety Report 12400021 (Version 1)
Quarter: 2016Q2

REPORT INFORMATION
  Report Type: Report from Study
  Country: BR (occurrence: BR)
  Receive Date: 20160524
  Receipt Date: 20160524
  Transmission Date: 20160815
  Serious: Yes (Death, Other)
  Sender: FDA-Public Use
  Company Number: PHHY2016BR027432

PATIENT
  Age: 27 Year
  Sex: Male
  Weight: 49 kg

DRUGS (1)
  1. EXJADE [Suspect]
     Active Substance: DEFERASIROX
     Indication: SICKLE CELL ANAEMIA
     Dosage: 20 MG/KG, QD (1000 MG ONCE DAILY)
     Route: 048
     Dates: start: 20151111

REACTIONS (13)
  - Weight decreased [Unknown]
  - Dizziness [Unknown]
  - Pyrexia [Recovering/Resolving]
  - Asthenia [Unknown]
  - Lethargy [Recovering/Resolving]
  - Anaemia [Unknown]
  - Joint swelling [Unknown]
  - Yellow skin [Unknown]
  - Death [Fatal]
  - Pain in extremity [Unknown]
  - Pain [Recovering/Resolving]
  - Headache [Recovering/Resolving]
  - Sickle cell anaemia with crisis [Recovering/Resolving]

NARRATIVE: CASE EVENT DATE: 20160206
